FAERS Safety Report 6255879-8 (Version None)
Quarter: 2009Q3

REPORT INFORMATION
  Report Type: 
  Country: None (occurrence: None)
  Receive Date: 20090703
  Receipt Date: 20090630
  Transmission Date: 20100115
  Serious: Yes (Hospitalization)
  Sender: FDA-Public Use
  Company Number: CH-ROCHE-641293

PATIENT
  Age: 34 Year
  Sex: Male
  Weight: 76 kg

DRUGS (2)
  1. ROCEPHIN [Suspect]
     Indication: DRUG USE FOR UNKNOWN INDICATION
     Route: 041
     Dates: start: 20080114, end: 20080123
  2. AUGMENTIN [Concomitant]
     Indication: CHOLECYSTITIS
     Dates: start: 20071101

REACTIONS (1)
  - CHOLESTATIC LIVER INJURY [None]
